FAERS Safety Report 9345419 (Version 1)
Quarter: 2013Q2

REPORT INFORMATION
  Report Type: Report from Study
  Country: US (occurrence: US)
  Receive Date: 20130613
  Receipt Date: 20130613
  Transmission Date: 20140414
  Serious: Yes (Hospitalization)
  Sender: FDA-Public Use
  Company Number: US-ROCHE-1162932

PATIENT
  Age: 53 Year
  Sex: Male

DRUGS (6)
  1. PEGASYS [Suspect]
     Indication: CHRONIC HEPATITIS C
     Route: 058
     Dates: start: 20121117, end: 20130427
  2. PEGASYS [Suspect]
     Route: 058
     Dates: start: 20130427
  3. PEGASYS [Suspect]
     Route: 065
     Dates: start: 20130427
  4. COPEGUS [Suspect]
     Indication: CHRONIC HEPATITIS C
     Dosage: DIVIDED DOSES
     Route: 048
     Dates: start: 20121117, end: 20130504
  5. COPEGUS [Suspect]
     Dosage: DAILY IN DIVIDE DOSES
     Route: 048
     Dates: start: 20130504
  6. COPEGUS [Suspect]
     Route: 065
     Dates: start: 20130504

REACTIONS (34)
  - Convulsion [Unknown]
  - Hypoaesthesia [Unknown]
  - Movement disorder [Unknown]
  - Nausea [Unknown]
  - Vomiting [Unknown]
  - Pyrexia [Unknown]
  - Chills [Unknown]
  - Depression [Unknown]
  - Oropharyngeal pain [Unknown]
  - Insomnia [Unknown]
  - Cough [Unknown]
  - Thyroid function test abnormal [Unknown]
  - Blood glucose abnormal [Unknown]
  - Feeling of body temperature change [Unknown]
  - Productive cough [Unknown]
  - Visual impairment [Unknown]
  - Nasopharyngitis [Unknown]
  - Fatigue [Unknown]
  - Dry skin [Unknown]
  - Skin fissures [Unknown]
  - Haemorrhage [Unknown]
  - Dysgeusia [Recovered/Resolved]
  - Toothache [Recovered/Resolved]
  - Headache [Unknown]
  - Platelet count decreased [Unknown]
  - Constipation [Unknown]
  - Hiatus hernia [Unknown]
  - Haemoglobin decreased [Unknown]
  - Pruritus [Not Recovered/Not Resolved]
  - Irritability [Not Recovered/Not Resolved]
  - Pain [Unknown]
  - Mucous stools [Unknown]
  - Tunnel vision [Unknown]
  - Feeling abnormal [Unknown]
